FAERS Safety Report 6196207-6 (Version None)
Quarter: 2009Q2

REPORT INFORMATION
  Report Type: 
  Country: None (occurrence: None)
  Receive Date: 20090520
  Receipt Date: 20090513
  Transmission Date: 20091009
  Serious: Yes (Hospitalization)
  Sender: FDA-Public Use
  Company Number: AT-ASTRAZENECA-2009PK01295

PATIENT
  Age: 23659 Day
  Sex: Female
  Weight: 77 kg

DRUGS (1)
  1. NOLVADEX [Suspect]
     Indication: BREAST CANCER
     Route: 048
     Dates: start: 20040306

REACTIONS (3)
  - CARPAL TUNNEL SYNDROME [None]
  - CERVICAL ROOT PAIN [None]
  - HYPERTENSION [None]
